FAERS Safety Report 10075775 (Version 1)
Quarter: 2014Q2

REPORT INFORMATION
  Report Type: Spontaneous
  Country: US (occurrence: US)
  Receive Date: 20140414
  Receipt Date: 20140414
  Transmission Date: 20141212
  Serious: No
  Sender: FDA-Public Use
  Company Number: US-009507513-1403USA013205

PATIENT
  Sex: 0

DRUGS (1)
  1. IMPLANON [Suspect]
     Dosage: 1 DF, UNK
     Route: 059
     Dates: start: 201103, end: 20140325

REACTIONS (4)
  - Device breakage [Unknown]
  - Device deployment issue [Recovered/Resolved]
  - Device difficult to use [Unknown]
  - No adverse event [Unknown]
